FAERS Safety Report 23668074 (Version 2)
Quarter: 2024Q1

REPORT INFORMATION
  Report Type: Spontaneous
  Country: US (occurrence: US)
  Receive Date: 20240325
  Receipt Date: 20240329
  Transmission Date: 20240410
  Serious: Yes (Other)
  Sender: FDA-Public Use
  Company Number: US-002147023-NVSC2024US030301

PATIENT
  Age: 79 Year
  Sex: Male

DRUGS (2)
  1. BROMFENAC [Suspect]
     Active Substance: BROMFENAC SODIUM
     Indication: Macular hole
     Dosage: (0.7 PERCENT OPHTHALMIC SOLUTION TWICE DAILY
     Route: 047
  2. DIFLUPREDNATE [Suspect]
     Active Substance: DIFLUPREDNATE
     Indication: Macular hole
     Dosage: 0.05 PERCENT OPHTHALMIC EMULSION 3 TIMES A DAY
     Route: 047

REACTIONS (3)
  - Visual acuity reduced [Recovering/Resolving]
  - Rebound effect [Recovering/Resolving]
  - Product use in unapproved indication [Unknown]
